FAERS Safety Report 9096534 (Version 2)
Quarter: 2013Q1

REPORT INFORMATION
  Report Type: Spontaneous
  Country: JP (occurrence: None)
  Receive Date: 20130124
  Receipt Date: 20130207
  Transmission Date: 20140127
  Serious: Yes (Hospitalization)
  Sender: FDA-Public Use
  Company Number: TCI2013A00261

PATIENT
  Age: 80 Year
  Sex: Female

DRUGS (2)
  1. ROZEREM TABLETS 8MG (RAMELTEON) [Suspect]
     Indication: INSOMNIA
     Route: 048
     Dates: start: 20111116, end: 20111117
  2. WYPAX (LORAZEPAM) [Concomitant]

REACTIONS (2)
  - Femoral neck fracture [None]
  - Fall [None]
